FAERS Safety Report 6054733-4 (Version None)
Quarter: 2009Q1

REPORT INFORMATION
  Report Type: 
  Country: None (occurrence: None)
  Receive Date: 20090128
  Receipt Date: 20090122
  Transmission Date: 20090719
  Serious: Yes (Other)
  Sender: FDA-Public Use
  Company Number: US-BRISTOL-MYERS SQUIBB COMPANY-14480081

PATIENT
  Age: 67 Year
  Sex: Female

DRUGS (3)
  1. WARFARIN SODIUM [Suspect]
     Indication: ATRIAL FLUTTER
     Dosage: DECREASED BY 31% TO 26 MG/WEEK
  2. WARFARIN SODIUM [Interacting]
     Indication: TRANSIENT ISCHAEMIC ATTACK
     Dosage: DECREASED BY 31% TO 26 MG/WEEK
  3. NON-MEDICINAL PRODUCT [Interacting]

REACTIONS (2)
  - FOOD INTERACTION [None]
  - INTERNATIONAL NORMALISED RATIO INCREASED [None]
